FAERS Safety Report 13077361 (Version 1)
Quarter: 2016Q4

REPORT INFORMATION
  Report Type: Spontaneous
  Country: US (occurrence: US)
  Receive Date: 20161230
  Receipt Date: 20161230
  Transmission Date: 20170207
  Serious: No
  Sender: FDA-Public Use
  Company Number: US-DRREDDYS-USA/USA/16/0084314

PATIENT
  Sex: Female
  Weight: 97.52 kg

DRUGS (1)
  1. NICOTINE. [Suspect]
     Active Substance: NICOTINE
     Indication: SMOKING CESSATION THERAPY
     Route: 062

REACTIONS (6)
  - Treatment noncompliance [Unknown]
  - Expired product administered [Unknown]
  - Pruritus [Recovering/Resolving]
  - Pain [Unknown]
  - Therapeutic response decreased [Unknown]
  - Overdose [Unknown]
